FAERS Safety Report 9034537 (Version 1)
Quarter: 2013Q1

REPORT INFORMATION
  Report Type: Spontaneous
  Country: US (occurrence: US)
  Receive Date: 20130128
  Receipt Date: 20130128
  Transmission Date: 20140127
  Serious: No
  Sender: FDA-Public Use
  Company Number: US-009507513-1301USA011901

PATIENT
  Sex: Male
  Weight: 72.56 kg

DRUGS (4)
  1. VICTRELIS [Suspect]
     Dosage: 4 DF, TID
     Route: 048
  2. PEGASYS [Suspect]
  3. RIBAPAK [Suspect]
     Dosage: 1000/DAY
  4. CEPHALEXIN [Concomitant]

REACTIONS (1)
  - Groin infection [Unknown]
